FAERS Safety Report 21499511 (Version 1)
Quarter: 2022Q4

REPORT INFORMATION
  Report Type: Spontaneous
  Country: FR (occurrence: FR)
  Receive Date: 20221024
  Receipt Date: 20221024
  Transmission Date: 20230113
  Serious: Yes (Life-Threatening, Other)
  Sender: FDA-Public Use
  Company Number: FR-BEXIMCO-2022BEX00060

PATIENT
  Age: 55 Year
  Sex: Female
  Weight: 80 kg

DRUGS (1)
  1. CARVEDILOL [Suspect]
     Active Substance: CARVEDILOL
     Indication: Suicide attempt
     Dosage: 75 MG, IMMEDIATE-RELEASE
     Route: 048

REACTIONS (3)
  - Suicide attempt [Recovered/Resolved]
  - Hepatic cytolysis [Recovered/Resolved]
  - Toxicity to various agents [Recovered/Resolved]
